FAERS Safety Report 6161784-8 (Version None)
Quarter: 2009Q2

REPORT INFORMATION
  Report Type: 
  Country: None (occurrence: None)
  Receive Date: 20090421
  Receipt Date: 20090406
  Transmission Date: 20091009
  Serious: Yes (Hospitalization)
  Sender: FDA-Public Use
  Company Number: DE-ROCHE-624947

PATIENT
  Age: 95 Year
  Sex: Female
  Weight: 63 kg

DRUGS (10)
  1. TORASEMIDE [Suspect]
     Route: 048
     Dates: start: 20000101
  2. AMLOBETA [Interacting]
     Route: 048
     Dates: start: 20000101, end: 20080901
  3. MOLSICOR [Interacting]
     Route: 048
     Dates: start: 20040101, end: 20080901
  4. PENTALONG [Interacting]
     Route: 048
     Dates: start: 20040101, end: 20080901
  5. MELPERONE [Interacting]
     Dosage: TAKEN AT NIGHT.
     Route: 048
     Dates: start: 20070101
  6. ASPIRIN [Concomitant]
     Route: 048
     Dates: start: 19950101
  7. METHIZOL [Concomitant]
     Indication: HYPERTHYROIDISM
     Route: 048
     Dates: start: 20020101
  8. PANTOZOL [Concomitant]
     Route: 048
     Dates: start: 20070101
  9. TEBONIN [Concomitant]
     Route: 048
     Dates: end: 20080901
  10. TRAMABETA [Concomitant]
     Route: 048
     Dates: start: 20040101

REACTIONS (2)
  - DRUG INTERACTION [None]
  - HYPOTENSION [None]
